FAERS Safety Report 21880466 (Version 8)
Quarter: 2023Q4

REPORT INFORMATION
  Report Type: Report from Study
  Country: AT (occurrence: AT)
  Receive Date: 20230118
  Receipt Date: 20231130
  Transmission Date: 20240110
  Serious: Yes (Hospitalization)
  Sender: FDA-Public Use
  Company Number: AT-ROCHE-3229411

PATIENT
  Age: 45 Year
  Sex: Female
  Weight: 46 kg

DRUGS (42)
  1. PACLITAXEL [Suspect]
     Active Substance: PACLITAXEL
     Indication: Breast cancer
     Dosage: 140 MILLIGRAM, QW
     Route: 042
     Dates: start: 20210811, end: 20210927
  2. PACLITAXEL [Suspect]
     Active Substance: PACLITAXEL
     Indication: HER2 positive breast cancer
     Dosage: 140 MILLIGRAM, QW
     Route: 042
     Dates: start: 20210811
  3. PACLITAXEL [Suspect]
     Active Substance: PACLITAXEL
     Dosage: 140 MILLIGRAM, QW
     Route: 042
     Dates: start: 20210927
  4. PACLITAXEL [Suspect]
     Active Substance: PACLITAXEL
     Dosage: 140 MILLIGRAM, QW
     Route: 042
     Dates: start: 20210920
  5. PACLITAXEL [Suspect]
     Active Substance: PACLITAXEL
     Dosage: 640 MILLIGRAM, Q2W
     Route: 042
     Dates: start: 20220118, end: 20220301
  6. SACITUZUMAB GOVITECAN [Suspect]
     Active Substance: SACITUZUMAB GOVITECAN
     Indication: HER2 positive breast cancer
     Dosage: 840 MILLIGRAM, Q2W
     Route: 042
     Dates: start: 20210311, end: 20210825
  7. SACITUZUMAB GOVITECAN [Suspect]
     Active Substance: SACITUZUMAB GOVITECAN
     Dosage: 460 MILLIGRAM, QW
     Route: 042
     Dates: start: 20220315
  8. ADO-TRASTUZUMAB EMTANSINE [Suspect]
     Active Substance: ADO-TRASTUZUMAB EMTANSINE
     Indication: Breast cancer
     Dosage: 160 MILLIGRAM, Q3W
     Route: 042
     Dates: start: 20180523, end: 20200615
  9. ADO-TRASTUZUMAB EMTANSINE [Suspect]
     Active Substance: ADO-TRASTUZUMAB EMTANSINE
     Indication: HER2 positive breast cancer
  10. ATEZOLIZUMAB [Suspect]
     Active Substance: ATEZOLIZUMAB
     Indication: HER2 positive breast cancer
     Dosage: 640 MILLIGRAM, Q2W
     Route: 042
     Dates: start: 20220118, end: 20220301
  11. ATEZOLIZUMAB [Suspect]
     Active Substance: ATEZOLIZUMAB
     Dosage: 840 MILLIGRAM, Q2W
     Route: 042
     Dates: start: 20220218, end: 20220301
  12. ATEZOLIZUMAB [Suspect]
     Active Substance: ATEZOLIZUMAB
     Dosage: 840 MILLIGRAM, Q2W
     Route: 042
     Dates: start: 20210811, end: 20210927
  13. CAPECITABINE [Suspect]
     Active Substance: CAPECITABINE
     Indication: Breast cancer
     Dosage: 1000 MILLIGRAM, QD
     Route: 048
     Dates: start: 20211014, end: 20211109
  14. CAPECITABINE [Suspect]
     Active Substance: CAPECITABINE
     Indication: HER2 positive breast cancer
     Dosage: 2000 MILLIGRAM, QD
     Route: 048
     Dates: start: 20211014, end: 20211109
  15. XARELTO [Concomitant]
     Active Substance: RIVAROXABAN
     Indication: Subclavian vein thrombosis
     Dosage: ONGOING = CHECKED
     Route: 065
     Dates: start: 20210818
  16. XARELTO [Concomitant]
     Active Substance: RIVAROXABAN
     Indication: Axillary vein thrombosis
  17. XARELTO [Concomitant]
     Active Substance: RIVAROXABAN
     Indication: Venous thrombosis
  18. LASIX [Concomitant]
     Active Substance: FUROSEMIDE
     Dosage: ONGOING = CHECKED
     Route: 065
     Dates: start: 20210913
  19. NEBIVOLOL [Concomitant]
     Active Substance: NEBIVOLOL
     Indication: Ejection fraction decreased
     Dosage: ONGOING = CHECKED
     Route: 065
     Dates: start: 20211005
  20. POLYETHYLENE GLYCOL 3350\POTASSIUM CHLORIDE\SODIUM BICARBONATE\SODIUM [Concomitant]
     Active Substance: POLYETHYLENE GLYCOL 3350\POTASSIUM CHLORIDE\SODIUM BICARBONATE\SODIUM CHLORIDE
     Indication: Constipation
     Dosage: ONGOING = CHECKED
     Route: 065
     Dates: start: 20210614
  21. LISINOPRIL [Concomitant]
     Active Substance: LISINOPRIL
     Indication: Ejection fraction decreased
     Dosage: ONGOING = CHECKED
     Route: 065
     Dates: start: 20200525
  22. LISINOPRIL [Concomitant]
     Active Substance: LISINOPRIL
     Dosage: ONGOING = CHECKED
     Route: 065
     Dates: start: 20200813
  23. LISINOPRIL [Concomitant]
     Active Substance: LISINOPRIL
     Dosage: ONGOING = CHECKED
     Route: 065
     Dates: start: 20200815
  24. LISINOPRIL [Concomitant]
     Active Substance: LISINOPRIL
     Dosage: ONGOING = CHECKED
     Route: 065
     Dates: start: 20211006, end: 20230218
  25. Paspertin [Concomitant]
     Dosage: ONGOING = CHECKED
     Route: 065
     Dates: start: 20210811
  26. ONDANSETRON [Concomitant]
     Active Substance: ONDANSETRON
     Dosage: ONGOING = CHECKED
     Route: 065
     Dates: start: 20220118, end: 20220426
  27. PREGABALIN [Concomitant]
     Active Substance: PREGABALIN
     Indication: Pain in extremity
     Dosage: ONGOING = CHECKED
     Route: 065
     Dates: start: 20220508
  28. DIPYRONE [Concomitant]
     Active Substance: DIPYRONE
     Dosage: ONGOING = CHECKED
     Route: 065
     Dates: start: 20210907
  29. LEVOTHYROXINE SODIUM [Concomitant]
     Active Substance: LEVOTHYROXINE SODIUM
     Indication: Hypothyroidism
     Dosage: ONGOING = CHECKED
     Route: 065
     Dates: start: 20211128
  30. DIPHENHYDRAMINE [Concomitant]
     Active Substance: DIPHENHYDRAMINE
     Dosage: ONGOING = CHECKED
     Route: 065
     Dates: start: 20220315
  31. ACETAMINOPHEN [Concomitant]
     Active Substance: ACETAMINOPHEN
     Dosage: ONGOING = CHECKED
     Route: 065
     Dates: start: 20220315
  32. ZOFRAN [Concomitant]
     Active Substance: ONDANSETRON HYDROCHLORIDE
     Dosage: ONGOING = CHECKED
     Route: 065
     Dates: start: 20210811
  33. ZOFRAN [Concomitant]
     Active Substance: ONDANSETRON HYDROCHLORIDE
     Dosage: UNK ONGOING = CHECKED
     Route: 065
     Dates: start: 20220118, end: 20220426
  34. MORPHINE [Concomitant]
     Active Substance: MORPHINE
     Indication: Subclavian vein thrombosis
     Dosage: ONGOING = CHECKED
     Route: 065
     Dates: start: 20210912
  35. MORPHINE [Concomitant]
     Active Substance: MORPHINE
     Indication: Axillary vein thrombosis
  36. MORPHINE [Concomitant]
     Active Substance: MORPHINE
     Indication: Venous thrombosis
  37. DEXAMETHASONE [Concomitant]
     Active Substance: DEXAMETHASONE
     Dosage: ONGOING = CHECKED
     Route: 065
     Dates: start: 20220315
  38. FENTANYL [Concomitant]
     Active Substance: FENTANYL\FENTANYL CITRATE
     Indication: Pain in extremity
     Dosage: ONGOING = CHECKED
     Route: 065
     Dates: start: 20220426
  39. AVELOX [Concomitant]
     Active Substance: MOXIFLOXACIN HYDROCHLORIDE
     Dosage: UNK, ONGOING = NOT CHECKED
     Route: 065
     Dates: start: 20230210, end: 20230216
  40. FRAGMIN [Concomitant]
     Active Substance: DALTEPARIN SODIUM
     Dosage: UNK
     Route: 065
  41. ENOXAPARIN SODIUM [Concomitant]
     Active Substance: ENOXAPARIN SODIUM
     Dosage: UNK
     Route: 065
  42. SPIRONOLACTONE [Concomitant]
     Active Substance: SPIRONOLACTONE
     Dosage: UNK, ONGOING = NOT CHECKED
     Route: 065
     Dates: start: 20230128

REACTIONS (7)
  - Catheter site injury [Recovered/Resolved]
  - Catheter site inflammation [Recovered/Resolved]
  - Complication associated with device [Recovered/Resolved]
  - Pleural effusion [Recovered/Resolved]
  - Ascites [Recovered/Resolved]
  - Catheter site infection [Recovered/Resolved]
  - Rash [Unknown]

NARRATIVE: CASE EVENT DATE: 20220217
